FAERS Safety Report 21860903 (Version 1)
Quarter: 2023Q1

REPORT INFORMATION
  Report Type: Spontaneous
  Country: US (occurrence: None)
  Receive Date: 20230111
  Receipt Date: 20230111
  Transmission Date: 20230418
  Serious: Yes (Other)
  Sender: FDA-Public Use
  Company Number: None

PATIENT
  Sex: Female

DRUGS (4)
  1. RIZATRIPTAN [Suspect]
     Active Substance: RIZATRIPTAN
     Indication: Migraine
  2. TYLENOL EXTRA STRENGTH [Suspect]
     Active Substance: ACETAMINOPHEN
  3. ADVIL MIGRAINE [Suspect]
     Active Substance: IBUPROFEN
     Indication: Migraine
     Dosage: FREQUENCY : AS NEEDED;?
     Route: 048
  4. PROZAC [Concomitant]
     Active Substance: FLUOXETINE HYDROCHLORIDE

REACTIONS (3)
  - Placenta accreta [None]
  - Complication of pregnancy [None]
  - Maternal exposure during pregnancy [None]

NARRATIVE: CASE EVENT DATE: 20230101
